FAERS Safety Report 18358255 (Version 1)
Quarter: 2020Q4

REPORT INFORMATION
  Report Type: Report from Study
  Country: None (occurrence: US)
  Receive Date: 20201007
  Receipt Date: 20201007
  Transmission Date: 20210114
  Serious: Yes (Hospitalization, Other)
  Sender: FDA-Public Use
  Company Number: US-ABBVIE-20K-163-3593418-00

PATIENT
  Sex: Male

DRUGS (1)
  1. HUMIRA [Suspect]
     Active Substance: ADALIMUMAB
     Indication: RHEUMATOID ARTHRITIS
     Route: 058

REACTIONS (7)
  - Cardiac failure [Not Recovered/Not Resolved]
  - SARS-CoV-2 test positive [Recovering/Resolving]
  - Diabetes mellitus [Recovering/Resolving]
  - Peripheral swelling [Recovering/Resolving]
  - Gait disturbance [Unknown]
  - Fall [Recovering/Resolving]
  - Cellulitis [Not Recovered/Not Resolved]
